FAERS Safety Report 19094836 (Version 1)
Quarter: 2021Q2

REPORT INFORMATION
  Report Type: Spontaneous
  Country: LK (occurrence: LK)
  Receive Date: 20210405
  Receipt Date: 20210405
  Transmission Date: 20210717
  Serious: Yes (Hospitalization, Other)
  Sender: FDA-Public Use
  Company Number: LK-ANIPHARMA-2021-LK-000001

PATIENT
  Age: 39 Year
  Sex: Male

DRUGS (1)
  1. AMITRIPTYLINE (NON?SPECIFIC) [Suspect]
     Active Substance: AMITRIPTYLINE
     Indication: POOR QUALITY SLEEP
     Dosage: 25 MG AT NIGHT
     Route: 048

REACTIONS (3)
  - Loss of consciousness [Recovered/Resolved]
  - Drug dependence [Recovered/Resolved]
  - Status epilepticus [Recovered/Resolved]
